FAERS Safety Report 4410656-5 (Version None)
Quarter: 2004Q3

REPORT INFORMATION
  Report Type: 
  Country: None (occurrence: None)
  Receive Date: 20040729
  Receipt Date: 20040723
  Transmission Date: 20050211
  Serious: Yes (Life-Threatening, Hospitalization)
  Sender: FDA-Public Use
  Company Number: 200417293GDDC

PATIENT
  Age: 72 Year
  Sex: Female
  Weight: 63.8 kg

DRUGS (4)
  1. ARAVA [Suspect]
     Indication: RHEUMATOID ARTHRITIS
     Route: 048
     Dates: start: 20040628, end: 20040702
  2. BENDROFLUAZIDE [Concomitant]
     Indication: HYPERTENSION
     Route: 048
     Dates: end: 20040702
  3. DIHYDROCODEINE [Concomitant]
     Indication: PAIN
     Route: 048
     Dates: end: 20040702
  4. METHOTREXATE [Concomitant]
     Indication: RHEUMATOID ARTHRITIS
     Dosage: DOSE: 15 (GRADUALLY REDUCING)
     Route: 048
     Dates: start: 20010101, end: 20040628

REACTIONS (3)
  - DIALYSIS [None]
  - RENAL FAILURE ACUTE [None]
  - VOMITING [None]
